FAERS Safety Report 21692552 (Version 1)
Quarter: 2022Q4

REPORT INFORMATION
  Report Type: Report from Study
  Country: EG (occurrence: EG)
  Receive Date: 20221207
  Receipt Date: 20221207
  Transmission Date: 20230113
  Serious: Yes (Other)
  Sender: FDA-Public Use
  Company Number: EG-BAYER-2022A167346

PATIENT
  Sex: Male

DRUGS (2)
  1. EYLEA [Suspect]
     Active Substance: AFLIBERCEPT
     Indication: Product used for unknown indication
     Dosage: SOLUTION FOR INJECTION , STRENGTH: 40MG/ML
     Route: 031
     Dates: start: 20190911, end: 202202
  2. JANUMET [Concomitant]
     Active Substance: METFORMIN HYDROCHLORIDE\SITAGLIPTIN PHOSPHATE
     Indication: Diabetes mellitus
     Dosage: 2 DF, QD
     Dates: start: 2017

REACTIONS (1)
  - Retinal disorder [Not Recovered/Not Resolved]

NARRATIVE: CASE EVENT DATE: 20221101
